FAERS Safety Report 17057545 (Version 1)
Quarter: 2019Q4

REPORT INFORMATION
  Report Type: Spontaneous
  Country: US (occurrence: US)
  Receive Date: 20191022
  Receipt Date: 20191022
  Transmission Date: 20200122
  Serious: Yes (Life-Threatening)
  Sender: FDA-Public Use
  Company Number: None

PATIENT
  Age: 67 Year
  Sex: Male

DRUGS (2)
  1. PROPOFOL. [Suspect]
     Active Substance: PROPOFOL
     Indication: SURGERY
     Route: 042
     Dates: start: 20191004, end: 20191004
  2. FENTANYL. [Suspect]
     Active Substance: FENTANYL
     Indication: SURGERY
     Route: 042
     Dates: start: 20191004, end: 20191004

REACTIONS (4)
  - Blood pressure decreased [None]
  - Cardiac arrest [None]
  - Pulseless electrical activity [None]
  - Oxygen saturation decreased [None]

NARRATIVE: CASE EVENT DATE: 20191004
